FAERS Safety Report 10868728 (Version 3)
Quarter: 2015Q2

REPORT INFORMATION
  Report Type: Report from Study
  Country: CO (occurrence: CO)
  Receive Date: 20150225
  Receipt Date: 20150422
  Transmission Date: 20150821
  Serious: Yes (Other)
  Sender: FDA-Public Use
  Company Number: PHHY2015CO020184

PATIENT
  Sex: Male
  Weight: 56 kg

DRUGS (1)
  1. EXJADE [Suspect]
     Active Substance: DEFERASIROX
     Indication: IRON OVERLOAD
     Dosage: 1 DF, QD
     Route: 065

REACTIONS (2)
  - Peripheral swelling [Recovered/Resolved]
  - Fluid retention [Recovering/Resolving]
